FAERS Safety Report 8366111-3 (Version None)
Quarter: 2012Q2

REPORT INFORMATION
  Report Type: 
  Country: None (occurrence: None)
  Receive Date: 20120516
  Receipt Date: 20120516
  Transmission Date: 20120825
  Serious: No
  Sender: FDA-Public Use
  Company Number: None

PATIENT
  Sex: Female
  Weight: 90.7194 kg

DRUGS (1)
  1. OASIS MOUTH SPRAY MILD MINT OASIS CONSUMER HEALTHCARE [Suspect]
     Indication: DRY MOUTH
     Dosage: 1 SPRAY
     Route: 048
     Dates: start: 20120318, end: 20120320

REACTIONS (3)
  - PRODUCT TASTE ABNORMAL [None]
  - PRODUCT QUALITY ISSUE [None]
  - ORAL DISCOMFORT [None]
